FAERS Safety Report 8516726-4 (Version None)
Quarter: 2012Q3

REPORT INFORMATION
  Report Type: 
  Country: None (occurrence: None)
  Receive Date: 20120706
  Receipt Date: 20120625
  Transmission Date: 20120928
  Serious: Yes (Other)
  Sender: FDA-Public Use
  Company Number: AUR-APL-2012-02869

PATIENT
  Age: 44 Year
  Sex: Female

DRUGS (3)
  1. OLANZAPINE [Concomitant]
  2. LAMOTRIGINE (LANOTRIGINE) [Suspect]
     Indication: SCHIZOPHRENIA
  3. CLOZAPINE [Suspect]
     Indication: SCHIZOPHRENIA

REACTIONS (2)
  - NEUROLEPTIC MALIGNANT SYNDROME [None]
  - AGRANULOCYTOSIS [None]
